FAERS Safety Report 21573693 (Version 1)
Quarter: 2022Q4

REPORT INFORMATION
  Report Type: Report from Study
  Country: US (occurrence: US)
  Receive Date: 20221109
  Receipt Date: 20221109
  Transmission Date: 20230113
  Serious: No
  Sender: FDA-Public Use
  Company Number: US-ABBVIE-4192932

PATIENT
  Age: 70 Year
  Sex: Male

DRUGS (15)
  1. VENCLEXTA [Suspect]
     Active Substance: VENETOCLAX
     Indication: Chronic lymphocytic leukaemia
     Route: 048
     Dates: start: 20221006
  2. Hyoscyamine Sulfate Oral Tablet 0.1 [Concomitant]
     Indication: Product used for unknown indication
     Route: 048
  3. Ondansetron HCl Oral Tablet 4 MG [Concomitant]
     Indication: Product used for unknown indication
     Route: 048
  4. Gazyva Intravenous Solution 1000 MG [Concomitant]
     Indication: Product used for unknown indication
     Route: 042
  5. Tadalafil Oral Tablet 10 MG [Concomitant]
     Indication: Product used for unknown indication
     Route: 048
  6. Flonase Allergy Relief Nasal Suspen [Concomitant]
     Indication: Product used for unknown indication
     Route: 045
  7. Rosuvastatin Calcium Oral Tablet 10 [Concomitant]
     Indication: Product used for unknown indication
     Route: 048
  8. CVS Glucosamine-Chondroitin Oral Ta [Concomitant]
     Indication: Product used for unknown indication
     Route: 048
  9. Gaviscon Extra Relief Formula Oral [Concomitant]
     Indication: Product used for unknown indication
     Route: 048
  10. Adult Aspirin Regimen Oral Tablet D [Concomitant]
     Indication: Product used for unknown indication
     Route: 048
  11. Metoprolol Succinate ER Oral Tablet [Concomitant]
     Indication: Product used for unknown indication
     Route: 048
  12. EQ Complete Multivit Adult 50 Oral [Concomitant]
     Indication: Product used for unknown indication
     Route: 048
  13. Mens Multivitamin Oral Tablet [Concomitant]
     Indication: Product used for unknown indication
     Route: 048
  14. Pantoprazole Sodium Oral Packet 40 [Concomitant]
     Indication: Product used for unknown indication
     Route: 048
  15. Simethicone Oral Capsule 180 MG [Concomitant]
     Indication: Product used for unknown indication
     Route: 048

REACTIONS (2)
  - Diarrhoea [Recovered/Resolved]
  - Nausea [Recovering/Resolving]

NARRATIVE: CASE EVENT DATE: 20221001
